FAERS Safety Report 15499017 (Version 5)
Quarter: 2021Q1

REPORT INFORMATION
  Report Type: Spontaneous
  Country: US (occurrence: US)
  Receive Date: 20181015
  Receipt Date: 20210128
  Transmission Date: 20210419
  Serious: No
  Sender: FDA-Public Use
  Company Number: US-JNJFOC-20180925154

PATIENT
  Age: 45 Year
  Sex: Female
  Weight: 72.64 kg

DRUGS (5)
  1. SERTRALINE [Concomitant]
     Active Substance: SERTRALINE HYDROCHLORIDE
     Route: 048
     Dates: start: 2013
  2. MIRTAZAPINE. [Concomitant]
     Active Substance: MIRTAZAPINE
     Route: 048
     Dates: start: 2013
  3. ALPRAZOLAM. [Concomitant]
     Active Substance: ALPRAZOLAM
     Indication: ANXIETY
     Dosage: AT NIGHT
     Route: 048
     Dates: start: 2013
  4. RISPERDAL [Suspect]
     Active Substance: RISPERIDONE
     Indication: DEPRESSION
     Route: 048
     Dates: start: 20140707, end: 201801
  5. RISPERDAL [Suspect]
     Active Substance: RISPERIDONE
     Indication: HALLUCINATION, AUDITORY
     Route: 048
     Dates: start: 201307

REACTIONS (15)
  - Dizziness [Recovered/Resolved]
  - Fall [Unknown]
  - Blood pressure decreased [Unknown]
  - Depression [Not Recovered/Not Resolved]
  - Dry mouth [Recovered/Resolved]
  - Furuncle [Unknown]
  - Scar [Unknown]
  - Abnormal weight gain [Recovered/Resolved]
  - Hostility [Unknown]
  - Limb injury [Unknown]
  - Agitation [Recovered/Resolved]
  - Anxiety [Not Recovered/Not Resolved]
  - Breast enlargement [Not Recovered/Not Resolved]
  - Back pain [Not Recovered/Not Resolved]
  - Irritability [Recovered/Resolved]

NARRATIVE: CASE EVENT DATE: 201307
